FAERS Safety Report 18078118 (Version 2)
Quarter: 2023Q1

REPORT INFORMATION
  Report Type: Spontaneous
  Country: NL (occurrence: NL)
  Receive Date: 20200728
  Receipt Date: 20230202
  Transmission Date: 20230417
  Serious: Yes (Other)
  Sender: FDA-Public Use
  Company Number: NL-SUN PHARMACEUTICAL INDUSTRIES LTD-2020R1-254572

PATIENT
  Age: 21 Year
  Sex: Female

DRUGS (3)
  1. MISOPROSTOL [Suspect]
     Active Substance: MISOPROSTOL
     Indication: Abortion
     Dosage: 200 MICROGRAM, BID
     Route: 048
  2. METHOTREXATE [Suspect]
     Active Substance: METHOTREXATE
     Indication: Abortion
     Dosage: UNK 1 MG/KG
     Route: 030
  3. MISOPROSTOL [Suspect]
     Active Substance: MISOPROSTOL
     Indication: Abortion
     Dosage: 200 MICROGRAM, TID
     Route: 067

REACTIONS (3)
  - Exposure during pregnancy [Unknown]
  - Drug ineffective [Unknown]
  - Premature labour [Unknown]
